FAERS Safety Report 12089112 (Version 1)
Quarter: 2016Q1

REPORT INFORMATION
  Report Type: Spontaneous
  Country: CA (occurrence: None)
  Receive Date: 20160217
  Receipt Date: 20160217
  Transmission Date: 20160526
  Serious: Yes (Life-Threatening, Hospitalization, Disabling, Other)
  Sender: FDA-Public Use
  Company Number: None

PATIENT
  Age: 51 Year
  Sex: Female

DRUGS (10)
  1. LITHIUM. [Suspect]
     Active Substance: LITHIUM
     Indication: BIPOLAR II DISORDER
     Dosage: 300MG PILLS - 2 PILLS 1ST DAY; 3 PILLS THEN ON  BEDTIME - BY MOUTH
     Route: 048
     Dates: start: 20151221
  2. LASIX [Concomitant]
     Active Substance: FUROSEMIDE
  3. SEROQUEL [Concomitant]
     Active Substance: QUETIAPINE FUMARATE
  4. CLONAZEPAM. [Concomitant]
     Active Substance: CLONAZEPAM
  5. ADAVAN [Concomitant]
     Active Substance: UNSPECIFIED INGREDIENT
  6. LITHIUM. [Suspect]
     Active Substance: LITHIUM
     Indication: POST-TRAUMATIC STRESS DISORDER
     Dosage: 300MG PILLS - 2 PILLS 1ST DAY; 3 PILLS THEN ON  BEDTIME - BY MOUTH
     Route: 048
     Dates: start: 20151221
  7. VENTOLIN [Concomitant]
     Active Substance: ALBUTEROL SULFATE
  8. TYLENOL [Concomitant]
     Active Substance: ACETAMINOPHEN
  9. IBUPROFEN. [Concomitant]
     Active Substance: IBUPROFEN
  10. NEOSPORIN [Concomitant]
     Active Substance: BACITRACIN ZINC\NEOMYCIN SULFATE\POLYMYXIN B SULFATE

REACTIONS (6)
  - Fluid retention [None]
  - Hallucinations, mixed [None]
  - Tremor [None]
  - Vertigo [None]
  - Fall [None]
  - Balance disorder [None]

NARRATIVE: CASE EVENT DATE: 201512
